FAERS Safety Report 7798656-9 (Version None)
Quarter: 2011Q4

REPORT INFORMATION
  Report Type: 
  Country: None (occurrence: None)
  Receive Date: 20111006
  Receipt Date: 20110929
  Transmission Date: 20120403
  Serious: Yes (Hospitalization)
  Sender: FDA-Public Use
  Company Number: DE-BIOGENIDEC-2011BI032092

PATIENT
  Age: 40 Year
  Sex: Male

DRUGS (4)
  1. LYRICA [Concomitant]
  2. MIRTAZAPINE [Concomitant]
  3. TYSABRI [Suspect]
     Indication: RELAPSING-REMITTING MULTIPLE SCLEROSIS
     Route: 042
     Dates: start: 20100624
  4. ZOLPIDEM [Concomitant]

REACTIONS (3)
  - VIRAL INFECTION [None]
  - GAIT DISTURBANCE [None]
  - PYREXIA [None]
